FAERS Safety Report 13693930 (Version 2)
Quarter: 2017Q3

REPORT INFORMATION
  Report Type: Spontaneous
  Country: BR (occurrence: BR)
  Receive Date: 20170627
  Receipt Date: 20170707
  Transmission Date: 20171127
  Serious: Yes (Other)
  Sender: FDA-Public Use
  Company Number: BR-PFIZER INC-2017273408

PATIENT
  Age: 65 Year
  Sex: Female

DRUGS (4)
  1. FRONTAL [Suspect]
     Active Substance: ALPRAZOLAM
     Dosage: 2MG IN THE AFTERNOON
     Dates: start: 201704, end: 201704
  2. TAMOXIFEN CITRATE. [Suspect]
     Active Substance: TAMOXIFEN CITRATE
     Indication: BREAST CANCER
     Dosage: UNK
     Dates: start: 2004, end: 2009
  3. FRONTAL [Suspect]
     Active Substance: ALPRAZOLAM
     Indication: RELAXATION THERAPY
     Dosage: 1MG AND 0.5 MG, DAILY
  4. FRONTAL [Suspect]
     Active Substance: ALPRAZOLAM
     Indication: SLEEP DISORDER
     Dosage: 1.25MG IN THE AFTERNOON AND 0.5MG AT NIGHT
     Dates: start: 2004

REACTIONS (14)
  - Intentional self-injury [Recovered/Resolved]
  - Gait disturbance [Not Recovered/Not Resolved]
  - Sedation [Recovered/Resolved]
  - Speech disorder [Recovering/Resolving]
  - Parkinson^s disease [Not Recovered/Not Resolved]
  - Glaucoma [Unknown]
  - Cardiovascular disorder [Not Recovered/Not Resolved]
  - Anxiety [Recovered/Resolved]
  - Crying [Recovered/Resolved]
  - Brain injury [Not Recovered/Not Resolved]
  - Drug dependence [Not Recovered/Not Resolved]
  - Irritability [Recovered/Resolved]
  - Thyroid disorder [Unknown]
  - Transient ischaemic attack [Recovered/Resolved]

NARRATIVE: CASE EVENT DATE: 2007
